FAERS Safety Report 8250860-1 (Version None)
Quarter: 2012Q2

REPORT INFORMATION
  Report Type: 
  Country: None (occurrence: None)
  Receive Date: 20120402
  Receipt Date: 20120328
  Transmission Date: 20120825
  Serious: Yes (Death, Disabling, Other)
  Sender: FDA-Public Use
  Company Number: PHHY2012JP027299

PATIENT
  Sex: Male
  Weight: 59 kg

DRUGS (6)
  1. LOXOPROFEN [Concomitant]
     Dosage: 180 MG, UNK
     Route: 048
     Dates: start: 20111009, end: 20111028
  2. AFINITOR [Suspect]
     Indication: METASTATIC RENAL CELL CARCINOMA
     Dosage: 5 MG, DAILY
     Route: 048
     Dates: start: 20111026, end: 20111028
  3. OMEPRAZOLE [Concomitant]
     Dosage: 20 MG, UNK
     Route: 048
     Dates: start: 20111009, end: 20111028
  4. BISOPROLOL FUMARATE [Concomitant]
     Dosage: 5 MG, UNK
     Route: 048
     Dates: start: 20111009, end: 20111028
  5. OLMESARTAN MEDOXOMIL [Concomitant]
     Dosage: 10 MG, UNK
     Route: 048
     Dates: start: 20111009, end: 20111028
  6. TORISEL [Concomitant]
     Indication: METASTATIC RENAL CELL CARCINOMA
     Dates: start: 20111029, end: 20111105

REACTIONS (4)
  - MULTI-ORGAN FAILURE [None]
  - DEHYDRATION [None]
  - RENAL IMPAIRMENT [None]
  - DYSPHAGIA [None]
